FAERS Safety Report 7841954-0 (Version None)
Quarter: 2011Q4

REPORT INFORMATION
  Report Type: 
  Country: None (occurrence: None)
  Receive Date: 20111025
  Receipt Date: 20111017
  Transmission Date: 20120403
  Serious: Yes (Other)
  Sender: FDA-Public Use
  Company Number: IT-BRISTOL-MYERS SQUIBB COMPANY-16166324

PATIENT
  Age: 68 Year
  Sex: Male

DRUGS (3)
  1. RITUXIMAB [Suspect]
     Indication: LEUKAEMIA
  2. CYCLOPHOSPHAMIDE [Suspect]
     Indication: LEUKAEMIA
  3. FLUDARABINE PHOSPHATE [Suspect]
     Indication: LEUKAEMIA

REACTIONS (2)
  - CYTOMEGALOVIRUS CHORIORETINITIS [None]
  - UVEITIS [None]
